FAERS Safety Report 21720206 (Version 2)
Quarter: 2022Q4

REPORT INFORMATION
  Report Type: Report from Study
  Country: BR (occurrence: BR)
  Receive Date: 20221213
  Receipt Date: 20221220
  Transmission Date: 20230112
  Serious: Yes (Other)
  Sender: FDA-Public Use
  Company Number: BR-JNJFOC-20221212449

PATIENT
  Age: 6 Decade
  Sex: Male
  Weight: 84 kg

DRUGS (1)
  1. INFLIXIMAB [Suspect]
     Active Substance: INFLIXIMAB
     Indication: Rheumatoid arthritis
     Route: 041
     Dates: end: 20220927

REACTIONS (2)
  - Tuberculosis [Unknown]
  - Kidney infection [Unknown]

NARRATIVE: CASE EVENT DATE: 20220401
